FAERS Safety Report 21696162 (Version 1)
Quarter: 2022Q4

REPORT INFORMATION
  Report Type: Spontaneous
  Country: US (occurrence: None)
  Receive Date: 20221207
  Receipt Date: 20221207
  Transmission Date: 20230112
  Serious: Yes (Death, Hospitalization)
  Sender: FDA-Public Use
  Company Number: None

PATIENT
  Age: 18 Year
  Sex: Male
  Weight: 80.6 kg

DRUGS (6)
  1. CYTARABINE [Suspect]
     Active Substance: CYTARABINE
     Dates: end: 20221024
  2. DAUNORUBICIN [Suspect]
     Active Substance: DAUNORUBICIN
     Dates: end: 20221019
  3. ZINECARD [Suspect]
     Active Substance: DEXRAZOXANE HYDROCHLORIDE
     Dates: end: 20221019
  4. MYLOTARG [Suspect]
     Active Substance: GEMTUZUMAB OZOGAMICIN
     Dates: end: 20221019
  5. HYDROCORTISONE [Suspect]
     Active Substance: HYDROCORTISONE
     Dates: end: 20221027
  6. METHOTREXATE [Suspect]
     Active Substance: METHOTREXATE
     Dates: end: 20221027

REACTIONS (6)
  - Fall [None]
  - Subdural haematoma [None]
  - Seizure [None]
  - Hypertension [None]
  - Bradycardia [None]
  - Thrombocytopenia [None]

NARRATIVE: CASE EVENT DATE: 20221101
